FAERS Safety Report 24233601 (Version 1)
Quarter: 2024Q3

REPORT INFORMATION
  Report Type: Spontaneous
  Country: US (occurrence: US)
  Receive Date: 20240821
  Receipt Date: 20240821
  Transmission Date: 20241017
  Serious: No
  Sender: PERRIGO
  Company Number: US-PERRIGO-23US012205

PATIENT
  Age: 49 Year
  Sex: Female
  Weight: 86.168 kg

DRUGS (2)
  1. MINOXIDIL [Suspect]
     Active Substance: MINOXIDIL
     Indication: Alopecia
     Dosage: 0.75 ML, BID
     Route: 061
     Dates: start: 20230928, end: 20230930
  2. MINOXIDIL [Suspect]
     Active Substance: MINOXIDIL
     Dosage: 0.75 ML, QD
     Route: 061
     Dates: start: 20231001, end: 20231005

REACTIONS (4)
  - Application site erythema [Recovered/Resolved]
  - Application site pain [Recovered/Resolved]
  - Underdose [Unknown]
  - Inappropriate schedule of product administration [Unknown]

NARRATIVE: CASE EVENT DATE: 20230928
